FAERS Safety Report 19154219 (Version 8)
Quarter: 2023Q2

REPORT INFORMATION
  Report Type: Report from Study
  Country: CO (occurrence: CO)
  Receive Date: 20210419
  Receipt Date: 20230410
  Transmission Date: 20230721
  Serious: Yes (Other)
  Sender: FDA-Public Use
  Company Number: NVSC2021CO084382

PATIENT
  Sex: Female
  Weight: 26.9 kg

DRUGS (2)
  1. OMNITROPE [Suspect]
     Active Substance: SOMATROPIN
     Indication: Turner^s syndrome
     Dosage: 1 MG, QD (1 OF 1.0 MG)
     Route: 058
  2. OMNITROPE [Suspect]
     Active Substance: SOMATROPIN
     Dosage: UNK, QD
     Route: 058
     Dates: start: 20200212

REACTIONS (4)
  - Ear disorder [Unknown]
  - Mass [Unknown]
  - Neoplasm [Unknown]
  - Li-Fraumeni syndrome [Unknown]
